FAERS Safety Report 5140458-6 (Version None)
Quarter: 2006Q4

REPORT INFORMATION
  Report Type: 
  Country: None (occurrence: None)
  Receive Date: 20061025
  Receipt Date: 20061017
  Transmission Date: 20070319
  Serious: Yes (Life-Threatening, Hospitalization)
  Sender: FDA-Public Use
  Company Number: 220003N06FRA

PATIENT
  Age: 49 Year
  Sex: Female
  Weight: 72 kg

DRUGS (9)
  1. SAIZEN [Suspect]
     Indication: HYPOPITUITARISM
     Dosage: 0.8 MG, 1 IN 1 DAYS, SUBCUTANEOUS
     Route: 058
     Dates: start: 20051015
  2. HYDROCORTISONE [Concomitant]
  3. LEVOTHYROXINE SODIUM [Concomitant]
  4. CLIMASTON           (CLIMASTON) [Concomitant]
  5. ZOLPIDEM TARTRATE [Concomitant]
  6. ATORVASTATIN CALCIUM [Concomitant]
  7. BETASERC       (BETAHISTINE HYDROCHLORIDE) [Concomitant]
  8. PANTOPRAZOLE SODIUM [Concomitant]
  9. ZOLOFT [Concomitant]

REACTIONS (3)
  - MARITAL PROBLEM [None]
  - OVERDOSE [None]
  - SUICIDE ATTEMPT [None]
